FAERS Safety Report 4316437-5 (Version None)
Quarter: 2004Q1

REPORT INFORMATION
  Report Type: 
  Country: None (occurrence: None)
  Receive Date: 20040312
  Receipt Date: 20040312
  Transmission Date: 20041129
  Serious: No
  Sender: FDA-Public Use
  Company Number: None

PATIENT
  Age: 44 Year
  Sex: Male
  Weight: 63.5036 kg

DRUGS (6)
  1. PROZAC [Suspect]
     Indication: INSOMNIA
     Dosage: 20 MG 1X EVENING ORAL
     Route: 048
     Dates: start: 20040105, end: 20040206
  2. PROZAC [Suspect]
     Indication: OBSESSIVE-COMPULSIVE DISORDER
     Dosage: 20 MG 1X EVENING ORAL
     Route: 048
     Dates: start: 20040105, end: 20040206
  3. PAXIL [Suspect]
     Indication: INSOMNIA
     Dosage: 20 MG. 1X EVENING ORAL
     Route: 048
     Dates: start: 20040208, end: 20040310
  4. PAXIL [Suspect]
     Indication: OBSESSIVE-COMPULSIVE DISORDER
     Dosage: 20 MG. 1X EVENING ORAL
     Route: 048
     Dates: start: 20040208, end: 20040310
  5. SYNTHROID [Concomitant]
  6. ARICEPT [Concomitant]

REACTIONS (5)
  - ABNORMAL BEHAVIOUR [None]
  - AGGRESSION [None]
  - AGITATION [None]
  - DIARRHOEA [None]
  - INCONTINENCE [None]
